FAERS Safety Report 12502368 (Version 1)
Quarter: 2016Q2

REPORT INFORMATION
  Report Type: Report from Study
  Country: US (occurrence: US)
  Receive Date: 20160627
  Receipt Date: 20160627
  Transmission Date: 20160815
  Serious: Yes (Hospitalization)
  Sender: FDA-Public Use
  Company Number: US-GILEAD-2016-0219831

PATIENT
  Age: 90 Year
  Sex: Female

DRUGS (4)
  1. IDELALISIB [Suspect]
     Active Substance: IDELALISIB
     Indication: B-CELL LYMPHOMA
     Dosage: 100 MG, BID
     Route: 048
     Dates: start: 20140927
  2. AMARYL [Concomitant]
     Active Substance: GLIMEPIRIDE
  3. AMLODIPINE [Concomitant]
     Active Substance: AMLODIPINE BESYLATE
  4. CLARITIN [Concomitant]
     Active Substance: LORATADINE

REACTIONS (4)
  - Peripheral swelling [Unknown]
  - Blood test abnormal [Unknown]
  - Rash [Unknown]
  - Drug dose omission [Unknown]
